FAERS Safety Report 17067409 (Version 1)
Quarter: 2019Q4

REPORT INFORMATION
  Report Type: Spontaneous
  Country: US (occurrence: US)
  Receive Date: 20191122
  Receipt Date: 20191122
  Transmission Date: 20200122
  Serious: No
  Sender: FDA-Public Use
  Company Number: US-BIODELIVERY SCIENCES INTERNATIONAL-2019BDSI0557

PATIENT
  Age: 77 Year
  Sex: Female
  Weight: 56.75 kg

DRUGS (5)
  1. BUPRENORPHINE. [Suspect]
     Active Substance: BUPRENORPHINE
     Dosage: 2 FILMS AT A TIME; N/A
     Route: 002
     Dates: start: 20190702
  2. OXYCODONE [Concomitant]
     Active Substance: OXYCODONE
     Indication: PAIN
     Dosage: UNKNOWN; UNKNOWN
     Route: 048
     Dates: start: 2017
  3. BUPRENORPHINE. [Suspect]
     Active Substance: BUPRENORPHINE
     Indication: PAIN
     Route: 002
     Dates: start: 20190702
  4. PARACETAMOL [Concomitant]
     Active Substance: ACETAMINOPHEN
     Indication: PAIN
     Dosage: UNKNOWN; UNKNOWN
     Route: 048
  5. DICLOFENAC [Concomitant]
     Active Substance: DICLOFENAC
     Indication: PAIN
     Dosage: UNKNOWN; UNKNOWN
     Route: 048

REACTIONS (11)
  - Oral administration complication [Recovered/Resolved]
  - Initial insomnia [Unknown]
  - Product solubility abnormal [Unknown]
  - Wrong technique in product usage process [Recovered/Resolved]
  - Dizziness [Unknown]
  - Oral discomfort [Not Recovered/Not Resolved]
  - Product administration error [Unknown]
  - Hypoaesthesia [Not Recovered/Not Resolved]
  - Drug ineffective [Not Recovered/Not Resolved]
  - Breakthrough pain [Not Recovered/Not Resolved]
  - Oral disorder [Not Recovered/Not Resolved]

NARRATIVE: CASE EVENT DATE: 201907
